FAERS Safety Report 5088376-6 (Version None)
Quarter: 2006Q3

REPORT INFORMATION
  Report Type: 
  Country: None (occurrence: None)
  Receive Date: 20060822
  Receipt Date: 20060810
  Transmission Date: 20061208
  Serious: Yes (Hospitalization)
  Sender: FDA-Public Use
  Company Number: 228632

PATIENT
  Age: 18 Year
  Sex: Female

DRUGS (6)
  1. XOLAIR [Suspect]
     Indication: DRUG USE FOR UNKNOWN INDICATION
     Dosage: 150 MG
     Dates: start: 20060718, end: 20060718
  2. XOLAIR [Suspect]
     Indication: DRUG USE FOR UNKNOWN INDICATION
     Dosage: 300 MG
     Dates: start: 20060801, end: 20060801
  3. SALBUTAMOL SULFATE (ALBUTEROL/ALBUTEROL SULFATE) [Concomitant]
  4. SYMBICORT (BUDESONIDE, FORMOTEROL FUMARATE) [Concomitant]
  5. RHINOCORT [Concomitant]
  6. CONTINUOUS POSITIVE AIRWAY PRESSURE (RESPIRATORY TREATMENT AND DEVICES [Concomitant]

REACTIONS (5)
  - HYPERTENSION [None]
  - MALAISE [None]
  - NAUSEA [None]
  - SYNCOPE [None]
  - TACHYCARDIA [None]
